FAERS Safety Report 6954373-6 (Version None)
Quarter: 2010Q3

REPORT INFORMATION
  Report Type: 
  Country: None (occurrence: None)
  Receive Date: 20100829
  Receipt Date: 20100713
  Transmission Date: 20110219
  Serious: No
  Sender: FDA-Public Use
  Company Number: US-ABBOTT-10P-163-0658028-00

PATIENT
  Sex: Female
  Weight: 69.462 kg

DRUGS (5)
  1. NIASPAN [Suspect]
     Indication: BLOOD CHOLESTEROL INCREASED
     Route: 048
     Dates: start: 20100401, end: 20100601
  2. NIASPAN [Suspect]
     Route: 048
     Dates: start: 20100701
  3. ASPIRIN [Concomitant]
     Indication: CARDIAC DISORDER
     Route: 048
  4. TOPROL-XL [Concomitant]
     Indication: HYPERTENSION
  5. COLACE [Concomitant]
     Indication: IRRITABLE BOWEL SYNDROME
     Route: 048

REACTIONS (6)
  - BLOOD GLUCOSE INCREASED [None]
  - CHEST PAIN [None]
  - CONSTIPATION [None]
  - COUGH [None]
  - HYPERHIDROSIS [None]
  - HYPOAESTHESIA [None]
